FAERS Safety Report 7746885-2 (Version None)
Quarter: 2011Q3

REPORT INFORMATION
  Report Type: 
  Country: None (occurrence: None)
  Receive Date: 20110908
  Receipt Date: 20110825
  Transmission Date: 20111222
  Serious: Yes (Hospitalization)
  Sender: FDA-Public Use
  Company Number: 1000023429

PATIENT
  Age: 86 Year
  Sex: Female

DRUGS (7)
  1. BIPRETERAX (INDAPAMIDE ERBUMINE, PERINDOPRIL ERBUMINE) [Concomitant]
  2. PANTOPRAZOLE [Concomitant]
  3. ESCITALOPRAM [Suspect]
     Indication: DEPRESSION
     Dosage: 10 MG (10 MG, 1 IN 1 D), ORAL
     Route: 048
     Dates: start: 20110610, end: 20110622
  4. ZOLPIDEM TARTRATE [Concomitant]
  5. ASPIRIN [Concomitant]
  6. INEGY (EZETIMIBE, SIMVASTATIN) [Concomitant]
  7. METEOSPASMYL (ALVERINE CITRATE, METHIONINE) [Concomitant]

REACTIONS (19)
  - MENTAL DISORDER [None]
  - HAEMOGLOBIN DECREASED [None]
  - BLOOD SODIUM DECREASED [None]
  - MUSCLE SPASMS [None]
  - LOGORRHOEA [None]
  - ASTHENIA [None]
  - ANXIETY [None]
  - AGITATION [None]
  - CRYING [None]
  - TACHYPHRENIA [None]
  - HYPOKALAEMIA [None]
  - MICROALBUMINURIA [None]
  - BLOOD POTASSIUM DECREASED [None]
  - ABDOMINAL PAIN [None]
  - HEPATITIS ACUTE [None]
  - CYTOLYTIC HEPATITIS [None]
  - AFFECTIVE DISORDER [None]
  - COGNITIVE DISORDER [None]
  - MEMORY IMPAIRMENT [None]
